FAERS Safety Report 15245248 (Version 2)
Quarter: 2019Q2

REPORT INFORMATION
  Report Type: Spontaneous
  Country: US (occurrence: US)
  Receive Date: 20180806
  Receipt Date: 20190424
  Transmission Date: 20190711
  Serious: No
  Sender: FDA-Public Use
  Company Number: US-PFIZER INC-2018311466

PATIENT
  Age: 77 Year
  Sex: Female
  Weight: 93.4 kg

DRUGS (1)
  1. MEPERIDINE HCL [Suspect]
     Active Substance: MEPERIDINE HYDROCHLORIDE
     Dosage: UNK

REACTIONS (3)
  - Vomiting [Unknown]
  - Drug hypersensitivity [Unknown]
  - Urticaria [Unknown]
